FAERS Safety Report 7931078-6 (Version None)
Quarter: 2011Q4

REPORT INFORMATION
  Report Type: 
  Country: None (occurrence: None)
  Receive Date: 20111121
  Receipt Date: 20111116
  Transmission Date: 20120403
  Serious: Yes (Life-Threatening)
  Sender: FDA-Public Use
  Company Number: FR-ASTRAZENECA-2011SE04594

PATIENT
  Age: 9332 Day
  Sex: Female

DRUGS (10)
  1. REMIFENTANIL [Concomitant]
     Dates: start: 20110117
  2. PRAZEPAM [Concomitant]
  3. ETOMIDATE [Concomitant]
     Dates: start: 20110117
  4. VENTOLIN [Concomitant]
  5. RENAGEL [Concomitant]
  6. AUGMENTIN [Suspect]
     Indication: PROPHYLAXIS
     Route: 042
     Dates: start: 20110117, end: 20110117
  7. TRACRIUM [Concomitant]
     Dates: start: 20110117
  8. NAROPIN [Suspect]
     Indication: ANALGESIC THERAPY
     Route: 004
     Dates: start: 20110117, end: 20110117
  9. TRANXENE [Concomitant]
  10. IMOVANE [Concomitant]

REACTIONS (1)
  - ANAPHYLACTIC SHOCK [None]
